FAERS Safety Report 20540971 (Version 1)
Quarter: 2022Q1

REPORT INFORMATION
  Report Type: Spontaneous
  Country: US (occurrence: US)
  Receive Date: 20220302
  Receipt Date: 20220302
  Transmission Date: 20220423
  Serious: Yes (Death, Hospitalization)
  Sender: FDA-Public Use
  Company Number: US-JNJFOC-20210958032

PATIENT
  Age: 79 Year
  Sex: Male

DRUGS (4)
  1. ZYTIGA [Suspect]
     Active Substance: ABIRATERONE ACETATE
     Indication: Product used for unknown indication
     Route: 048
     Dates: start: 20170830
  2. ZYTIGA [Suspect]
     Active Substance: ABIRATERONE ACETATE
     Route: 048
     Dates: start: 20170830
  3. INSULIN NOS [Concomitant]
     Active Substance: INSULIN NOS
     Indication: Type 2 diabetes mellitus
     Route: 065
  4. COVID-19 VACCINE [Concomitant]
     Indication: Immunisation
     Dates: start: 202103

REACTIONS (3)
  - Septic shock [Fatal]
  - Gastrointestinal perforation [Fatal]
  - Internal haemorrhage [Fatal]

NARRATIVE: CASE EVENT DATE: 20210901
